FAERS Safety Report 15849346 (Version 1)
Quarter: 2019Q1

REPORT INFORMATION
  Report Type: Report from Study
  Country: DE (occurrence: DE)
  Receive Date: 20190121
  Receipt Date: 20190121
  Transmission Date: 20190417
  Serious: Yes (Hospitalization, Other)
  Sender: FDA-Public Use
  Company Number: DE-TEVA-2019-DE-1001197

PATIENT
  Age: 76 Year
  Sex: Female

DRUGS (2)
  1. METHOTREXATE. [Suspect]
     Active Substance: METHOTREXATE
     Indication: RHEUMATOID ARTHRITIS
     Route: 065
  2. ABATACEPT [Suspect]
     Active Substance: ABATACEPT
     Indication: RHEUMATOID ARTHRITIS
     Dosage: STOP DATE:1JUL13,  RESTART 11JUL13  750MG-MAR13  125MG-27MAY13-29AUG13  2 WEEK  LAST DOSE:3JUN14
     Route: 058
     Dates: start: 20130313

REACTIONS (9)
  - Hiatus hernia [Unknown]
  - Angina pectoris [Recovered/Resolved]
  - Inguinal hernia [Recovered/Resolved]
  - Type 2 diabetes mellitus [Not Recovered/Not Resolved]
  - Atrial fibrillation [Unknown]
  - Weight decreased [Unknown]
  - Influenza like illness [Unknown]
  - Nasopharyngitis [Recovered/Resolved]
  - Hepatic steatosis [Unknown]

NARRATIVE: CASE EVENT DATE: 20130605
